FAERS Safety Report 8523575-X (Version None)
Quarter: 2012Q3

REPORT INFORMATION
  Report Type: 
  Country: None (occurrence: None)
  Receive Date: 20120709
  Receipt Date: 20120625
  Transmission Date: 20120928
  Serious: Yes (Death)
  Sender: FDA-Public Use
  Company Number: TCI2012A03116

PATIENT
  Age: 72 Year
  Sex: Male

DRUGS (2)
  1. ROZEREM TABLETES 8MG (RAMELTEON) [Suspect]
     Indication: INSOMNIA
     Dosage: 8 MG (8 MG, 1 IN 1 D)
     Route: 048
     Dates: start: 20120106, end: 20120506
  2. INVEGA [Concomitant]

REACTIONS (5)
  - CARDIAC FAILURE [None]
  - HYPERTHYROIDISM [None]
  - PLEURAL EFFUSION [None]
  - CEREBRAL ATROPHY [None]
  - PNEUMONIA [None]
